FAERS Safety Report 4773307-6 (Version None)
Quarter: 2005Q3

REPORT INFORMATION
  Report Type: 
  Country: None (occurrence: None)
  Receive Date: 20050916
  Receipt Date: 20050908
  Transmission Date: 20060218
  Serious: Yes (Hospitalization)
  Sender: FDA-Public Use
  Company Number: 2005S1000157

PATIENT
  Age: 72 Year
  Sex: Male
  Weight: 101 kg

DRUGS (10)
  1. CUBICIN [Suspect]
     Indication: DIABETIC FOOT
     Dosage: 4 MG/KG/Q24H/IV
     Route: 042
     Dates: start: 20050616, end: 20050710
  2. CUBICIN [Suspect]
     Indication: WOUND INFECTION STAPHYLOCOCCAL
     Dosage: 4 MG/KG/Q24H/IV
     Route: 042
     Dates: start: 20050616, end: 20050710
  3. INVANZ [Concomitant]
  4. SIMVASTATIN [Concomitant]
  5. METFORMIN HCL [Concomitant]
  6. PIOGLITAZONE HCL [Concomitant]
  7. AMARYL [Concomitant]
  8. LASIX [Concomitant]
  9. ASPIRIN [Concomitant]
  10. IRON [Concomitant]

REACTIONS (17)
  - ANAEMIA [None]
  - BLOOD CREATINE PHOSPHOKINASE INCREASED [None]
  - BLOOD IRON DECREASED [None]
  - CANDIDIASIS [None]
  - CARDIAC FAILURE CONGESTIVE [None]
  - HAEMOGLOBIN DECREASED [None]
  - MITRAL VALVE INCOMPETENCE [None]
  - MYOCARDIAL INFARCTION [None]
  - PULMONARY HYPERTENSION [None]
  - REFUSAL OF TREATMENT BY PATIENT [None]
  - SUPRAVENTRICULAR EXTRASYSTOLES [None]
  - SUPRAVENTRICULAR TACHYCARDIA [None]
  - TACHYCARDIA [None]
  - TREATMENT NONCOMPLIANCE [None]
  - TRICUSPID VALVE INCOMPETENCE [None]
  - VENTRICULAR EXTRASYSTOLES [None]
  - WOUND INFECTION [None]
